FAERS Safety Report 8231429-1 (Version None)
Quarter: 2012Q1

REPORT INFORMATION
  Report Type: 
  Country: None (occurrence: None)
  Receive Date: 20120320
  Receipt Date: 20120314
  Transmission Date: 20120608
  Serious: Yes (Hospitalization)
  Sender: FDA-Public Use
  Company Number: 2012030004

PATIENT
  Age: 52 Year
  Sex: Male
  Weight: 55.6 kg

DRUGS (1)
  1. MESALAMINE [Suspect]
     Indication: COLITIS ULCERATIVE
     Dosage: 1500-4000 MG/DAY

REACTIONS (7)
  - PLATELET COUNT INCREASED [None]
  - LYMPHOCYTE STIMULATION TEST POSITIVE [None]
  - CYANOSIS [None]
  - ORGANISING PNEUMONIA [None]
  - LUNG DISORDER [None]
  - ANTIBODY TEST POSITIVE [None]
  - ANAEMIA [None]
